FAERS Safety Report 23542677 (Version 2)
Quarter: 2024Q1

REPORT INFORMATION
  Report Type: Spontaneous
  Country: US (occurrence: US)
  Receive Date: 20240220
  Receipt Date: 20240321
  Transmission Date: 20240410
  Serious: No
  Sender: FDA-Public Use
  Company Number: US-BRISTOL-MYERS SQUIBB COMPANY-2024-027056

PATIENT
  Age: 76 Year
  Sex: Male
  Weight: 78.93 kg

DRUGS (1)
  1. REVLIMID [Suspect]
     Active Substance: LENALIDOMIDE
     Indication: Plasma cell myeloma
     Dosage: FREQUENCY: 3WKSON,1WKOFF
     Route: 048

REACTIONS (4)
  - Headache [Unknown]
  - Pruritus [Unknown]
  - Full blood count abnormal [Unknown]
  - Platelet count decreased [Unknown]
